FAERS Safety Report 4423051-X (Version None)
Quarter: 2004Q3

REPORT INFORMATION
  Report Type: 
  Country: None (occurrence: None)
  Receive Date: 20040809
  Receipt Date: 20040809
  Transmission Date: 20050211
  Serious: Yes (Hospitalization)
  Sender: FDA-Public Use
  Company Number: None

PATIENT
  Age: 61 Year
  Sex: Male
  Weight: 103.8737 kg

DRUGS (1)
  1. FLONASE [Suspect]
     Indication: NASAL CONGESTION
     Dosage: 2 SPRAYS EACH NOSTRILS QD
     Route: 045
     Dates: start: 20040329, end: 20040415

REACTIONS (1)
  - HYPERSENSITIVITY [None]
